FAERS Safety Report 17189735 (Version 1)
Quarter: 2019Q4

REPORT INFORMATION
  Report Type: Spontaneous
  Country: US (occurrence: US)
  Receive Date: 20191223
  Receipt Date: 20191223
  Transmission Date: 20200122
  Serious: Yes (Other)
  Sender: FDA-Public Use
  Company Number: US-LUPIN PHARMACEUTICALS INC.-2019-08416

PATIENT
  Age: 71 Year
  Sex: Female
  Weight: 23.58 kg

DRUGS (6)
  1. TEMAZEPAM CAPSULES, USP, 15 MG [Suspect]
     Active Substance: TEMAZEPAM
     Dosage: 1 DOSAGE FORM, QD
     Route: 048
  2. TEMAZEPAM CAPSULES, USP, 15 MG [Suspect]
     Active Substance: TEMAZEPAM
     Dosage: 2 DOSAGE FORM, QD (1 CAPSULE 3 NIGHTS AND THEN 2 CAPSULES FOR 1 NIGHT AND THEN 2 CAPSULES FOR ONE NI
     Route: 048
  3. TEMAZEPAM CAPSULES, USP, 30 MG [Suspect]
     Active Substance: TEMAZEPAM
     Indication: SLEEP DISORDER DUE TO GENERAL MEDICAL CONDITION, INSOMNIA TYPE
     Dosage: UNK
     Route: 048
     Dates: start: 1997, end: 20191110
  4. NIACINAMIDE [Concomitant]
     Active Substance: NIACINAMIDE
     Indication: HYPERCHOLESTEROLAEMIA
     Dosage: UNK UNK, QD
     Route: 065
  5. PRAVASTATIN. [Concomitant]
     Active Substance: PRAVASTATIN
     Indication: HYPERCHOLESTEROLAEMIA
     Dosage: UNK, EVERY THIRD NIGHT
     Route: 065
  6. TEMAZEPAM CAPSULES, USP, 15 MG [Suspect]
     Active Substance: TEMAZEPAM
     Indication: SLEEP DISORDER DUE TO GENERAL MEDICAL CONDITION, INSOMNIA TYPE
     Dosage: 1 DOSAGE FORM (1 CAPSULE EVERY OTHER NIGHT AND THEN 2 CAPSULES EVERY OTHER NIGHT FOR THREE WEEKS)
     Route: 048
     Dates: start: 20191110

REACTIONS (6)
  - Seizure [Unknown]
  - Head discomfort [Unknown]
  - Initial insomnia [Not Recovered/Not Resolved]
  - Middle insomnia [Not Recovered/Not Resolved]
  - Abnormal sleep-related event [Not Recovered/Not Resolved]
  - Disturbance in attention [Unknown]

NARRATIVE: CASE EVENT DATE: 2019
